FAERS Safety Report 7356568-9 (Version None)
Quarter: 2011Q1

REPORT INFORMATION
  Report Type: 
  Country: None (occurrence: None)
  Receive Date: 20110316
  Receipt Date: 20110302
  Transmission Date: 20110831
  Serious: Yes (Hospitalization, Other)
  Sender: FDA-Public Use
  Company Number: PHHY2010TW50334

PATIENT
  Sex: Male

DRUGS (1)
  1. GLEEVEC [Suspect]
     Indication: GASTROINTESTINAL STROMAL TUMOUR
     Dosage: 400 MG, UNK
     Route: 048

REACTIONS (5)
  - PLEURAL EFFUSION [None]
  - FALL [None]
  - CATARACT [None]
  - FATIGUE [None]
  - OEDEMA PERIPHERAL [None]
